FAERS Safety Report 11874157 (Version 2)
Quarter: 2016Q1

REPORT INFORMATION
  Report Type: Spontaneous
  Country: GB (occurrence: GB)
  Receive Date: 20151229
  Receipt Date: 20160224
  Transmission Date: 20160526
  Serious: Yes (Other)
  Sender: FDA-Public Use
  Company Number: GB-VELOXIS PHARMACEUTICALS-1045961

PATIENT
  Sex: Female

DRUGS (4)
  1. SOLIRIS [Suspect]
     Active Substance: ECULIZUMAB
     Route: 042
     Dates: start: 20140812
  2. SOLIRIS [Suspect]
     Active Substance: ECULIZUMAB
  3. ENVARSUS XR [Suspect]
     Active Substance: TACROLIMUS
     Indication: PRODUCT USED FOR UNKNOWN INDICATION
     Route: 065
  4. SOLIRIS [Suspect]
     Active Substance: ECULIZUMAB
     Route: 042
     Dates: start: 20140909, end: 20150608

REACTIONS (4)
  - Opportunistic infection [Unknown]
  - Pneumonia [Unknown]
  - Graft loss [Unknown]
  - Drug ineffective [None]

NARRATIVE: CASE EVENT DATE: 20150630
